FAERS Safety Report 12353670 (Version 1)
Quarter: 2016Q2

REPORT INFORMATION
  Report Type: Spontaneous
  Country: BE (occurrence: BE)
  Receive Date: 20160511
  Receipt Date: 20160511
  Transmission Date: 20160815
  Serious: Yes (Life-Threatening)
  Sender: FDA-Public Use
  Company Number: BE-ROCHE-1754673

PATIENT
  Age: 89 Year
  Sex: Female

DRUGS (8)
  1. ASAFLOW [Concomitant]
     Active Substance: ASPIRIN
  2. AMLOR [Concomitant]
     Active Substance: AMLODIPINE BESYLATE
  3. CLEXANE [Concomitant]
     Active Substance: ENOXAPARIN SODIUM
  4. OXYNORM [Concomitant]
     Active Substance: OXYCODONE HYDROCHLORIDE
  5. TAMIFLU [Suspect]
     Active Substance: OSELTAMIVIR PHOSPHATE
     Indication: INFLUENZA
     Route: 065
     Dates: start: 20160407
  6. ZESTRIL [Concomitant]
     Active Substance: LISINOPRIL
  7. DUOVENT [Concomitant]
     Active Substance: FENOTEROL HYDROBROMIDE
  8. DAFALGAN [Concomitant]
     Active Substance: ACETAMINOPHEN

REACTIONS (3)
  - Ventricular tachycardia [Recovered/Resolved]
  - Bradycardia [Recovered/Resolved]
  - Hypokalaemia [Recovered/Resolved]

NARRATIVE: CASE EVENT DATE: 20160409
